FAERS Safety Report 6893065-9 (Version None)
Quarter: 2010Q3

REPORT INFORMATION
  Report Type: 
  Country: None (occurrence: None)
  Receive Date: 20100731
  Receipt Date: 20090415
  Transmission Date: 20110219
  Serious: No
  Sender: FDA-Public Use
  Company Number: US-PFIZER INC-2009199613

PATIENT
  Sex: Female
  Weight: 79.4 kg

DRUGS (5)
  1. GABAPENTIN [Suspect]
     Indication: NEURALGIA
     Dosage: 300 MG, 3X/DAY
     Dates: start: 20090301
  2. LIPITOR [Concomitant]
     Indication: BLOOD CHOLESTEROL INCREASED
     Dosage: 40 MG DAILY
  3. MOTRIN [Concomitant]
     Dosage: 600 MG AS NEEDED
  4. SITAGLIPTIN [Concomitant]
     Indication: DIABETES MELLITUS
     Dosage: 100 MG, 1X/DAY
  5. METFORMIN/PIOGLITAZONE [Concomitant]
     Indication: DIABETES MELLITUS
     Dosage: 15/850 MG TWICE A DAY

REACTIONS (1)
  - DRUG INEFFECTIVE [None]
